FAERS Safety Report 8110907-X (Version None)
Quarter: 2012Q1

REPORT INFORMATION
  Report Type: 
  Country: None (occurrence: None)
  Receive Date: 20120203
  Receipt Date: 20120130
  Transmission Date: 20120608
  Serious: Yes (Hospitalization, Other)
  Sender: FDA-Public Use
  Company Number: US-B.I. PHARMACEUTICALS,INC./RIDGEFIELD-2012-BP-01856BP

PATIENT
  Sex: Female

DRUGS (8)
  1. SINGULAIR [Concomitant]
     Indication: ASTHMA
  2. METFORMIN HCL [Concomitant]
     Indication: DIABETES MELLITUS
  3. DUONEB [Concomitant]
     Indication: ASTHMA
  4. XOPENEX [Concomitant]
     Indication: ASTHMA
  5. AMARYL [Concomitant]
     Indication: DIABETES MELLITUS
  6. PRADAXA [Suspect]
     Indication: ATRIAL FIBRILLATION
     Dosage: 300 MG
     Route: 048
     Dates: start: 20101201, end: 20110501
  7. ADVAIR DISKUS 100/50 [Concomitant]
     Indication: ASTHMA
  8. ATROVENT [Concomitant]
     Indication: ASTHMA

REACTIONS (6)
  - ILL-DEFINED DISORDER [None]
  - FATIGUE [None]
  - PYREXIA [None]
  - ASTHENIA [None]
  - LOWER GASTROINTESTINAL HAEMORRHAGE [None]
  - HAEMOGLOBIN DECREASED [None]
